FAERS Safety Report 7398416-7 (Version None)
Quarter: 2011Q2

REPORT INFORMATION
  Report Type: 
  Country: None (occurrence: None)
  Receive Date: 20110406
  Receipt Date: 20110323
  Transmission Date: 20111010
  Serious: Yes (Life-Threatening)
  Sender: FDA-Public Use
  Company Number: DK-MYLANLABS-2011S1006340

PATIENT
  Age: 83 Year
  Sex: Male

DRUGS (1)
  1. CLOZAPINE [Suspect]
     Indication: SCHIZOAFFECTIVE DISORDER
     Dosage: CLOZAPINE EXPOSURE: 275 DEFINED DAILY DOSES (DDD=300MG)
     Route: 065

REACTIONS (1)
  - ACUTE MYELOID LEUKAEMIA [None]
